FAERS Safety Report 18168280 (Version 1)
Quarter: 2020Q3

REPORT INFORMATION
  Report Type: Spontaneous
  Country: US (occurrence: US)
  Receive Date: 20200818
  Receipt Date: 20200818
  Transmission Date: 20201103
  Serious: Yes (Hospitalization)
  Sender: FDA-Public Use
  Company Number: None

PATIENT
  Age: 59 Year
  Sex: Male

DRUGS (1)
  1. POMALYST [Suspect]
     Active Substance: POMALIDOMIDE
     Indication: AMYLOIDOSIS
     Route: 048
     Dates: start: 20200615, end: 20200711

REACTIONS (2)
  - Cerebellar artery occlusion [None]
  - Cerebrovascular accident [None]

NARRATIVE: CASE EVENT DATE: 20200711
